FAERS Safety Report 8350408-7 (Version None)
Quarter: 2012Q2

REPORT INFORMATION
  Report Type: 
  Country: None (occurrence: None)
  Receive Date: 20120510
  Receipt Date: 20120503
  Transmission Date: 20120825
  Serious: Yes (Hospitalization, Other)
  Sender: FDA-Public Use
  Company Number: US-BAYER-2012-044356

PATIENT
  Age: 32 Year
  Sex: Female
  Weight: 134.69 kg

DRUGS (6)
  1. YAZ [Suspect]
     Indication: CONTRACEPTION
     Dosage: UNK
     Dates: start: 20080101, end: 20090101
  2. TYLENOL COLD [PARACETAMOL] [Concomitant]
  3. ONE-A-DAY WEIGHTSMART [Concomitant]
  4. LEVAQUIN [Concomitant]
  5. KAPIDEX [Concomitant]
     Dosage: 60 MG, UNK
     Route: 048
  6. LORTAB [Concomitant]

REACTIONS (10)
  - CHOLECYSTITIS CHRONIC [None]
  - FLATULENCE [None]
  - SCAR [None]
  - ANXIETY [None]
  - DYSPEPSIA [None]
  - ABDOMINAL DISTENSION [None]
  - CHOLECYSTECTOMY [None]
  - DIARRHOEA [None]
  - DEPRESSION [None]
  - CONSTIPATION [None]
